FAERS Safety Report 24720645 (Version 1)
Quarter: 2024Q4

REPORT INFORMATION
  Report Type: Report from Study
  Country: DE (occurrence: DE)
  Receive Date: 20241211
  Receipt Date: 20241211
  Transmission Date: 20250114
  Serious: Yes (Other)
  Sender: OCTAPHARMA
  Company Number: DE-OCTA-2024000143

PATIENT
  Sex: Male

DRUGS (1)
  1. OCTAGAM IMMUNE GLOBULIN (HUMAN) [Suspect]
     Active Substance: HUMAN IMMUNOGLOBULIN G
     Indication: Immunomodulatory therapy
     Dosage: APPROX ONCE EVERY 2 MONTHS
     Route: 042

REACTIONS (1)
  - Cerebrovascular accident [Unknown]
